FAERS Safety Report 9771748 (Version 2)
Quarter: 2014Q1

REPORT INFORMATION
  Report Type: Spontaneous
  Country: US (occurrence: US)
  Receive Date: 20131219
  Receipt Date: 20140127
  Transmission Date: 20141002
  Serious: Yes (Other)
  Sender: FDA-Public Use
  Company Number: US-MERCK-1312USA006499

PATIENT
  Sex: Female

DRUGS (2)
  1. JANUVIA [Suspect]
     Indication: TYPE 2 DIABETES MELLITUS
     Dosage: 100MG TAKEN ONCE DAILY
     Route: 048
  2. METFORMIN [Concomitant]

REACTIONS (2)
  - Cerebrovascular accident [Unknown]
  - Nausea [Unknown]
